FAERS Safety Report 22021089 (Version 1)
Quarter: 2023Q1

REPORT INFORMATION
  Report Type: Spontaneous
  Country: US (occurrence: US)
  Receive Date: 20230222
  Receipt Date: 20230222
  Transmission Date: 20230417
  Serious: No
  Sender: FDA-Public Use
  Company Number: US-SA-SAC20230221001066

PATIENT
  Sex: Female

DRUGS (2)
  1. DUPIXENT [Suspect]
     Active Substance: DUPILUMAB
     Dosage: 300 MG;FREQUENCY: OTHER
     Route: 058
  2. TOPIRAMATE [Concomitant]
     Active Substance: TOPIRAMATE

REACTIONS (1)
  - Surgery [Unknown]
